FAERS Safety Report 23390330 (Version 1)
Quarter: 2024Q1

REPORT INFORMATION
  Report Type: Spontaneous
  Country: US (occurrence: US)
  Receive Date: 20240111
  Receipt Date: 20240111
  Transmission Date: 20240409
  Serious: Yes (Death, Other)
  Sender: FDA-Public Use
  Company Number: US-SUN PHARMACEUTICAL INDUSTRIES LTD-2023R1-426503

PATIENT
  Age: 27 Year
  Sex: Female

DRUGS (1)
  1. ALBUTEROL [Suspect]
     Active Substance: ALBUTEROL
     Indication: Occupational asthma
     Dosage: UNK

REACTIONS (3)
  - Brain death [Fatal]
  - Cardio-respiratory arrest [Fatal]
  - Condition aggravated [Fatal]
